FAERS Safety Report 24985020 (Version 1)
Quarter: 2025Q1

REPORT INFORMATION
  Report Type: Spontaneous
  Country: GB (occurrence: GB)
  Receive Date: 20250219
  Receipt Date: 20250219
  Transmission Date: 20250408
  Serious: No
  Sender: BECTON DICKINSON
  Company Number: GB-BECTON DICKINSON-GB-BD-25-000069

PATIENT

DRUGS (1)
  1. CHLORAPREP ONE-STEP FREPP [Suspect]
     Active Substance: CHLORHEXIDINE GLUCONATE\ISOPROPYL ALCOHOL
     Indication: Product used for unknown indication
     Route: 065

REACTIONS (3)
  - Injury associated with device [Unknown]
  - Occupational exposure to product [Unknown]
  - Device breakage [Unknown]
